FAERS Safety Report 12444207 (Version 2)
Quarter: 2018Q2

REPORT INFORMATION
  Report Type: Spontaneous
  Country: US (occurrence: US)
  Receive Date: 20160607
  Receipt Date: 20180515
  Transmission Date: 20180711
  Serious: No
  Sender: FDA-Public Use
  Company Number: US-SA-2016SA065072

PATIENT
  Sex: Male

DRUGS (8)
  1. SOLOSTAR [Concomitant]
     Active Substance: DEVICE
  2. TOUJEO [Suspect]
     Active Substance: INSULIN GLARGINE
     Indication: DIABETES MELLITUS
     Dosage: DOSE:16 UNIT(S)
     Route: 065
  3. LANTUS [Concomitant]
     Active Substance: INSULIN GLARGINE
     Dosage: DOSE:25 UNIT(S)
  4. HUMALOG [Concomitant]
     Active Substance: INSULIN LISPRO
  5. TOUJEO [Suspect]
     Active Substance: INSULIN GLARGINE
     Indication: DIABETES MELLITUS
     Dosage: DOSE:10 UNIT(S)
     Route: 065
  6. TOUJEO [Suspect]
     Active Substance: INSULIN GLARGINE
     Indication: DIABETES MELLITUS
     Dosage: DOSE:12 UNIT(S)
     Route: 065
  7. TOUJEO [Suspect]
     Active Substance: INSULIN GLARGINE
     Indication: DIABETES MELLITUS
     Dosage: DOSE:25 UNIT(S)
     Route: 065
  8. TOUJEO [Suspect]
     Active Substance: INSULIN GLARGINE
     Indication: DIABETES MELLITUS
     Dosage: DOSE:14 UNIT(S)
     Route: 065

REACTIONS (3)
  - Off label use [Unknown]
  - Drug ineffective [Unknown]
  - Blood glucose increased [Unknown]
